FAERS Safety Report 9033195 (Version 1)
Quarter: 2013Q1

REPORT INFORMATION
  Report Type: Spontaneous
  Country: CA (occurrence: CA)
  Receive Date: 20130128
  Receipt Date: 20130128
  Transmission Date: 20140127
  Serious: Yes (Hospitalization)
  Sender: FDA-Public Use
  Company Number: CA-SANOFI-AVENTIS-2013SA003712

PATIENT
  Age: 85 Year
  Sex: Male
  Weight: 53.6 kg

DRUGS (5)
  1. DOCETAXEL [Suspect]
     Indication: PROSTATE CANCER METASTATIC
     Route: 042
     Dates: start: 20111118, end: 20120608
  2. ANTINEOPLASTIC AGENTS [Suspect]
     Indication: PROSTATE CANCER METASTATIC
  3. PREDNISOLONE [Concomitant]
     Indication: PROSTATE CANCER
     Route: 048
     Dates: start: 20111118, end: 20120625
  4. IPRATROPIUM BROMIDE [Concomitant]
     Indication: DYSPNOEA
     Dosage: DOSE:2 PUFF(S)
     Route: 055
     Dates: start: 2006
  5. IPRATROPIUM BROMIDE [Concomitant]
     Indication: EMPHYSEMA
     Dosage: DOSE:2 PUFF(S)
     Route: 055
     Dates: start: 2006

REACTIONS (4)
  - Duodenal ulcer perforation [Recovered/Resolved]
  - Abdominal pain [Recovered/Resolved]
  - Dyspnoea [Recovered/Resolved]
  - Hypoxia [Recovered/Resolved]
